FAERS Safety Report 11837480 (Version 1)
Quarter: 2015Q4

REPORT INFORMATION
  Report Type: Spontaneous
  Country: BR (occurrence: BR)
  Receive Date: 20151215
  Receipt Date: 20151215
  Transmission Date: 20160305
  Serious: Yes (Hospitalization, Disabling, Other)
  Sender: FDA-Public Use
  Company Number: PHHY2015BR164007

PATIENT
  Age: 87 Year
  Sex: Male

DRUGS (1)
  1. NEOTIAPIM [Suspect]
     Active Substance: QUETIAPINE
     Indication: PRODUCT USED FOR UNKNOWN INDICATION
     Route: 065

REACTIONS (10)
  - Disability [Unknown]
  - Dementia [Unknown]
  - Drug ineffective [Unknown]
  - Dementia Alzheimer^s type [Unknown]
  - Hearing disability [Unknown]
  - Parkinson^s disease [Unknown]
  - Urinary tract infection [Unknown]
  - Condition aggravated [Unknown]
  - Diabetes mellitus [Unknown]
  - Hypertension [Unknown]
